FAERS Safety Report 25305304 (Version 1)
Quarter: 2025Q2

REPORT INFORMATION
  Report Type: Spontaneous
  Country: US (occurrence: None)
  Receive Date: 20250513
  Receipt Date: 20250513
  Transmission Date: 20250717
  Serious: Yes (Life-Threatening, Hospitalization)
  Sender: FDA-CTU
  Company Number: None

PATIENT
  Age: 67 Year
  Sex: Male
  Weight: 53 kg

DRUGS (1)
  1. CHLORTHALIDONE [Suspect]
     Active Substance: CHLORTHALIDONE
     Dosage: FREQUENCY : DAILY;?
     Route: 048
     Dates: start: 20241018, end: 20241031

REACTIONS (9)
  - Blood creatinine increased [None]
  - Hyponatraemia [None]
  - Hypotension [None]
  - Syncope [None]
  - Vomiting [None]
  - Dizziness [None]
  - Headache [None]
  - Nausea [None]
  - Therapy cessation [None]

NARRATIVE: CASE EVENT DATE: 20241101
